FAERS Safety Report 8803325 (Version 1)
Quarter: 2012Q4

REPORT INFORMATION
  Report Type: 
  Country: US (occurrence: US)
  Receive Date: 20120924
  Receipt Date: 20120924
  Transmission Date: 20130627
  Serious: No
  Sender: FDA-Public Use
  Company Number: US-009507513-1209USA000300

PATIENT
  Sex: Male

DRUGS (3)
  1. VICTRELIS [Suspect]
     Indication: HEPATITIS C
     Dosage: UNK
  2. REBETOL [Suspect]
     Indication: HEPATITIS C
     Dosage: UNK
  3. PEGASYS [Concomitant]
     Indication: HEPATITIS C
     Dosage: UNK

REACTIONS (6)
  - Anaemia [Unknown]
  - Pyrexia [Unknown]
  - Dyspnoea [Unknown]
  - Pollakiuria [Unknown]
  - Urinary incontinence [Unknown]
  - Dizziness [Unknown]
